FAERS Safety Report 22235374 (Version 2)
Quarter: 2023Q2

REPORT INFORMATION
  Report Type: Spontaneous
  Country: None (occurrence: GB)
  Receive Date: 20230420
  Receipt Date: 20230501
  Transmission Date: 20230721
  Serious: Yes (Other)
  Sender: FDA-Public Use
  Company Number: GB-MHRA-MIDB-499ebae7-cd6c-4eb6-96d7-c4d128bd8df7

PATIENT
  Age: 16 Year

DRUGS (2)
  1. NITROUS OXIDE [Suspect]
     Active Substance: NITROUS OXIDE
     Indication: Product used for unknown indication
  2. OXYGEN [Suspect]
     Active Substance: OXYGEN

REACTIONS (1)
  - Pulmonary haemorrhage [Recovered/Resolved]
